FAERS Safety Report 4335267-1 (Version None)
Quarter: 2004Q2

REPORT INFORMATION
  Report Type: 
  Country: None (occurrence: None)
  Receive Date: 20040406
  Receipt Date: 20040223
  Transmission Date: 20050107
  Serious: Yes (Other)
  Sender: FDA-Public Use
  Company Number: 359647

PATIENT

DRUGS (1)
  1. FUZEON [Suspect]
     Dates: start: 20031215

REACTIONS (1)
  - URTICARIA [None]
